FAERS Safety Report 5743085-2 (Version None)
Quarter: 2008Q2

REPORT INFORMATION
  Report Type: 
  Country: None (occurrence: None)
  Receive Date: 20080519
  Receipt Date: 20080509
  Transmission Date: 20081010
  Serious: Yes (Death, Hospitalization, Other)
  Sender: FDA-Public Use
  Company Number: US-AMGEN-QUU275258

PATIENT
  Sex: Male
  Weight: 100 kg

DRUGS (12)
  1. ENBREL [Suspect]
     Indication: DRUG USE FOR UNKNOWN INDICATION
     Route: 058
     Dates: start: 20030321, end: 20070922
  2. HUMIRA [Suspect]
     Indication: RHEUMATOID ARTHRITIS
     Route: 058
     Dates: start: 20050923, end: 20070902
  3. METHOTREXATE [Concomitant]
  4. CLONIDINE [Concomitant]
  5. GLIMEPIRIDE [Concomitant]
  6. INSULIN [Concomitant]
  7. AMLODIPINE [Concomitant]
  8. METOPROLOL TARTRATE [Concomitant]
  9. ATORVASTATIN CALCIUM [Concomitant]
  10. TYLOX [Concomitant]
  11. CETIRIZINE HCL [Concomitant]
  12. UNSPECIFIED MEDICATION [Concomitant]

REACTIONS (8)
  - ADENOCARCINOMA [None]
  - BACTERAEMIA [None]
  - COLD SWEAT [None]
  - HEPATIC NEOPLASM MALIGNANT [None]
  - METASTASIS [None]
  - PANCREATIC CARCINOMA [None]
  - PLEURITIC PAIN [None]
  - PNEUMONIA [None]
